FAERS Safety Report 9710838 (Version 1)
Quarter: 2013Q4

REPORT INFORMATION
  Report Type: Spontaneous
  Country: US (occurrence: US)
  Receive Date: 20131126
  Receipt Date: 20131126
  Transmission Date: 20140711
  Serious: No
  Sender: FDA-Public Use
  Company Number: US-BRISTOL-MYERS SQUIBB COMPANY-19019777

PATIENT
  Age: 69 Year
  Sex: Male
  Weight: 105.21 kg

DRUGS (3)
  1. BYDUREON [Suspect]
     Dosage: THERAPY ON 16MAY13
     Dates: start: 2013
  2. GLIMEPIRIDE [Concomitant]
  3. ACTOPLUS MET [Concomitant]

REACTIONS (1)
  - Injection site haemorrhage [Recovered/Resolved with Sequelae]
